FAERS Safety Report 4970289-9 (Version None)
Quarter: 2006Q2

REPORT INFORMATION
  Report Type: 
  Country: None (occurrence: None)
  Receive Date: 20060412
  Receipt Date: 20060331
  Transmission Date: 20061013
  Serious: Yes (Hospitalization)
  Sender: FDA-Public Use
  Company Number: DE-BRISTOL-MYERS SQUIBB COMPANY-13332960

PATIENT
  Age: 73 Year
  Sex: Male

DRUGS (4)
  1. CISPLATIN [Suspect]
     Indication: SMALL CELL LUNG CANCER STAGE UNSPECIFIED
     Route: 042
     Dates: start: 20060224, end: 20060224
  2. ETOPOSIDE [Suspect]
     Indication: SMALL CELL LUNG CANCER STAGE UNSPECIFIED
     Route: 042
     Dates: start: 20060224, end: 20060226
  3. PANTOPRAZOLE [Concomitant]
  4. MORPHINE SULFATE [Concomitant]

REACTIONS (6)
  - APATHY [None]
  - CONFUSIONAL STATE [None]
  - DEPRESSION [None]
  - INCONTINENCE [None]
  - NEPHROPATHY TOXIC [None]
  - WEIGHT DECREASED [None]
